FAERS Safety Report 13066089 (Version 2)
Quarter: 2017Q1

REPORT INFORMATION
  Report Type: Spontaneous
  Country: UA (occurrence: UA)
  Receive Date: 20161227
  Receipt Date: 20170131
  Transmission Date: 20170428
  Serious: Yes (Other)
  Sender: FDA-Public Use
  Company Number: UA-TEVA-722817ISR

PATIENT
  Age: 54 Year
  Sex: Female

DRUGS (2)
  1. DOXORUBICIN [Suspect]
     Active Substance: DOXORUBICIN
  2. DOCETAXEL. [Suspect]
     Active Substance: DOCETAXEL

REACTIONS (2)
  - Pneumonia [Recovered/Resolved]
  - Neoplasm malignant [Recovered/Resolved]
